FAERS Safety Report 13466782 (Version 1)
Quarter: 2017Q2

REPORT INFORMATION
  Report Type: Spontaneous
  Country: None (occurrence: US)
  Receive Date: 20170420
  Receipt Date: 20170420
  Transmission Date: 20170830
  Serious: No
  Sender: FDA-Public Use
  Company Number: None

PATIENT
  Age: 33 Year
  Sex: Male

DRUGS (1)
  1. HUMIRA [Suspect]
     Active Substance: ADALIMUMAB
     Indication: MYOCARDITIS
     Route: 058
     Dates: start: 20170206

REACTIONS (3)
  - Dry skin [None]
  - Skin exfoliation [None]
  - Skin disorder [None]

NARRATIVE: CASE EVENT DATE: 20170309
